FAERS Safety Report 10601176 (Version 2)
Quarter: 2014Q4

REPORT INFORMATION
  Report Type: Spontaneous
  Country: HU (occurrence: HU)
  Receive Date: 20141124
  Receipt Date: 20141203
  Transmission Date: 20150529
  Serious: Yes (Other)
  Sender: FDA-Public Use
  Company Number: HU-BAYER-2014-172247

PATIENT
  Age: 47 Year
  Sex: Female

DRUGS (1)
  1. MIRENA [Suspect]
     Active Substance: LEVONORGESTREL
     Indication: MENSTRUAL DISORDER
     Dosage: 20 ?G/D, CONT
     Route: 015
     Dates: start: 201405

REACTIONS (4)
  - Cyst [None]
  - Breast inflammation [None]
  - Breast abscess [None]
  - Breast discharge [None]

NARRATIVE: CASE EVENT DATE: 2014
